FAERS Safety Report 11776425 (Version 1)
Quarter: 2015Q4

REPORT INFORMATION
  Report Type: Report from Study
  Country: US (occurrence: US)
  Receive Date: 20151125
  Receipt Date: 20151125
  Transmission Date: 20160304
  Serious: Yes (Hospitalization)
  Sender: FDA-Public Use
  Company Number: US-ROCHE-683351

PATIENT
  Age: 46 Year
  Sex: Female

DRUGS (4)
  1. CARBOPLATIN. [Suspect]
     Active Substance: CARBOPLATIN
     Dosage: DOSE: 6 AUC. FREQUENCY: DAY 1.
     Route: 042
  2. PACLITAXEL. [Suspect]
     Active Substance: PACLITAXEL
     Indication: OVARIAN EPITHELIAL CANCER
     Dosage: FREQUENCY:ON DAY 1, 8 AND 15.
     Route: 042
  3. CARBOPLATIN. [Suspect]
     Active Substance: CARBOPLATIN
     Indication: OVARIAN EPITHELIAL CANCER
     Dosage: DOSE: 6 AUC; FREQIENCY: DAY 1.
     Route: 042
  4. BEVACIZUMAB [Suspect]
     Active Substance: BEVACIZUMAB
     Indication: OVARIAN EPITHELIAL CANCER
     Dosage: ON DAY 1.ON 28/JAN/2010, SHE RECEIVED THE LAST DOSE OF BEVACIZUMAB BEFORE THE SERIOUS ADVERSE EVENT.
     Route: 042

REACTIONS (17)
  - Wound infection [Unknown]
  - Small intestinal obstruction [Unknown]
  - Aspiration [Unknown]
  - Lung infection [Unknown]
  - Embolism [Unknown]
  - Thrombosis [Unknown]
  - Vascular access complication [Unknown]
  - Face oedema [Unknown]
  - Hypertension [Unknown]
  - Hyperglycaemia [Unknown]
  - Hypocalcaemia [Unknown]
  - Abdominal pain [Unknown]
  - Activated partial thromboplastin time prolonged [Unknown]
  - Acute kidney injury [Unknown]
  - Confusional state [Unknown]
  - Hypoalbuminaemia [Unknown]
  - Wound dehiscence [Unknown]

NARRATIVE: CASE EVENT DATE: 20091222
